FAERS Safety Report 6932443-6 (Version None)
Quarter: 2010Q3

REPORT INFORMATION
  Report Type: 
  Country: None (occurrence: None)
  Receive Date: 20100819
  Receipt Date: 20100809
  Transmission Date: 20110219
  Serious: Yes (Hospitalization)
  Sender: FDA-Public Use
  Company Number: GB-CELGENEUS-167-21880-10080712

PATIENT
  Sex: Male
  Weight: 100.7 kg

DRUGS (6)
  1. REVLIMID [Suspect]
     Indication: MANTLE CELL LYMPHOMA REFRACTORY
     Route: 048
     Dates: start: 20100208
  2. REVLIMID [Suspect]
     Route: 048
     Dates: start: 20100726
  3. MEROPENEM [Concomitant]
     Indication: NEUTROPENIA
     Route: 048
     Dates: start: 20100509
  4. QUINE SULFATE [Concomitant]
     Indication: MUSCLE SPASMS
     Route: 048
     Dates: start: 20100607
  5. NOVOMIX [Concomitant]
     Indication: DIABETES MELLITUS
     Dosage: 15 U MORNING/10 U EVENING
     Route: 058
  6. NEUPOGEN [Concomitant]
     Indication: PRODUCT USED FOR UNKNOWN INDICATION
     Route: 058
     Dates: start: 20100504

REACTIONS (5)
  - DIARRHOEA [None]
  - LETHARGY [None]
  - MALAISE [None]
  - NEUTROPENIA [None]
  - SEPSIS [None]
